FAERS Safety Report 4498920-5 (Version None)
Quarter: 2004Q4

REPORT INFORMATION
  Report Type: 
  Country: None (occurrence: None)
  Receive Date: 20041111
  Receipt Date: 20040712
  Transmission Date: 20050328
  Serious: Yes (Hospitalization)
  Sender: FDA-Public Use
  Company Number: PHEH2004US07450

PATIENT
  Age: 32 Year
  Sex: Female

DRUGS (2)
  1. FOCALIN [Suspect]
     Indication: ATTENTION DEFICIT/HYPERACTIVITY DISORDER
     Dosage: 5 MG, BID
     Route: 048
     Dates: start: 20040710
  2. ABILIFY [Concomitant]
     Indication: SCHIZOPHRENIA

REACTIONS (2)
  - INSOMNIA [None]
  - SCHIZOPHRENIA [None]
